FAERS Safety Report 4941435-8 (Version None)
Quarter: 2006Q1

REPORT INFORMATION
  Report Type: 
  Country: None (occurrence: None)
  Receive Date: 20060310
  Receipt Date: 20060227
  Transmission Date: 20060701
  Serious: Yes (Congenital Anomaly, Other)
  Sender: FDA-Public Use
  Company Number: 2006-0009079

PATIENT
  Sex: Male

DRUGS (4)
  1. TRUVADA [Suspect]
     Indication: HIV INFECTION
     Dosage: 1 DOSAGE FORMS, 1 IN 1 D, TRANSPLACENTAL
     Route: 064
     Dates: start: 20041210, end: 20050712
  2. RITONAVIR (RITONAVIR) [Concomitant]
  3. KALETRA [Concomitant]
  4. ATAZANAVIR (ATAZANAVIR) [Concomitant]

REACTIONS (10)
  - CHROMOSOMAL DELETION [None]
  - CLEFT PALATE [None]
  - DIGEORGE'S SYNDROME [None]
  - DRUG EXPOSURE BEFORE PREGNANCY [None]
  - DRUG EXPOSURE DURING PREGNANCY [None]
  - FALLOT'S TETRALOGY [None]
  - KIDNEY SMALL [None]
  - NEPHROCALCINOSIS [None]
  - PREMATURE BABY [None]
  - UNEVALUABLE EVENT [None]
